FAERS Safety Report 8722189 (Version 2)
Quarter: 2017Q1

REPORT INFORMATION
  Report Type: Spontaneous
  Country: US (occurrence: US)
  Receive Date: 20120814
  Receipt Date: 20170331
  Transmission Date: 20170429
  Serious: Yes (Other)
  Sender: FDA-Public Use
  Company Number: US-PFIZER INC-2012197009

PATIENT
  Sex: Female

DRUGS (4)
  1. LYRICA [Suspect]
     Active Substance: PREGABALIN
     Indication: FIBROMYALGIA
  2. GABAPENTIN. [Suspect]
     Active Substance: GABAPENTIN
     Indication: FIBROMYALGIA
  3. GABAPENTIN. [Suspect]
     Active Substance: GABAPENTIN
     Indication: NEUROPATHY PERIPHERAL
     Dosage: 300 MG, UNK
  4. LYRICA [Suspect]
     Active Substance: PREGABALIN
     Indication: NEUROPATHY PERIPHERAL
     Dosage: 150 MG, 3X/DAY

REACTIONS (8)
  - Intervertebral disc degeneration [Unknown]
  - Hypotonia [Unknown]
  - Bruxism [Not Recovered/Not Resolved]
  - Self-medication [Unknown]
  - Pharyngeal neoplasm [Unknown]
  - Nerve injury [Unknown]
  - Oral pain [Not Recovered/Not Resolved]
  - Pain [Not Recovered/Not Resolved]
